FAERS Safety Report 13378739 (Version 1)
Quarter: 2017Q1

REPORT INFORMATION
  Report Type: Spontaneous
  Country: US (occurrence: US)
  Receive Date: 20170328
  Receipt Date: 20170328
  Transmission Date: 20170429
  Serious: No
  Sender: FDA-Public Use
  Company Number: US-ROCHE-GNE312235

PATIENT
  Age: 69 Year
  Sex: Female

DRUGS (4)
  1. ORAL CORTICOSTEROIDS [Concomitant]
  2. DIURETIC (UNK INGREDIENTS) [Concomitant]
  3. BLOOD PRESSURE MEDICATION NOS [Concomitant]
     Active Substance: UNSPECIFIED INGREDIENT
  4. XOLAIR [Suspect]
     Active Substance: OMALIZUMAB
     Indication: ASTHMA
     Dosage: 150 MG, 1/MONTH
     Route: 058

REACTIONS (2)
  - Cough [None]
  - Hypersensitivity [Not Recovered/Not Resolved]
